FAERS Safety Report 25113209 (Version 1)
Quarter: 2025Q1

REPORT INFORMATION
  Report Type: Spontaneous
  Country: US (occurrence: US)
  Receive Date: 20250324
  Receipt Date: 20250324
  Transmission Date: 20250409
  Serious: No
  Sender: BAYER HEALTHCARE PHARMACEUTICALS INC.
  Company Number: US-BAYER-2025A038129

PATIENT
  Age: 18 Year
  Sex: Female

DRUGS (3)
  1. MIRENA [Suspect]
     Active Substance: LEVONORGESTREL
     Indication: Contraception
     Dosage: 20?G/DAY
     Route: 015
     Dates: start: 20250318, end: 20250318
  2. MIRENA [Suspect]
     Active Substance: LEVONORGESTREL
     Indication: Heavy menstrual bleeding
  3. TORADOL [Concomitant]
     Active Substance: KETOROLAC TROMETHAMINE
     Indication: Discomfort
     Route: 030
     Dates: start: 20250318

REACTIONS (6)
  - Device malfunction [Recovered/Resolved]
  - Procedural pain [None]
  - Pelvic pain [None]
  - Complication of device insertion [None]
  - Post procedural discomfort [None]
  - Perineal pain [None]

NARRATIVE: CASE EVENT DATE: 20250318
